FAERS Safety Report 21721973 (Version 7)
Quarter: 2024Q4

REPORT INFORMATION
  Report Type: Report from Study
  Country: DE (occurrence: DE)
  Receive Date: 20221213
  Receipt Date: 20241001
  Transmission Date: 20250115
  Serious: Yes (Hospitalization)
  Sender: ROCHE
  Company Number: DE-ROCHE-2905364

PATIENT
  Age: 40 Year
  Sex: Female
  Weight: 69.0 kg

DRUGS (16)
  1. OCREVUS [Suspect]
     Active Substance: OCRELIZUMAB
     Indication: Relapsing-remitting multiple sclerosis
     Dosage: NEXT DOSE ON 18/AUG/2021?210 DAYS, 300MG
     Route: 042
     Dates: start: 20210804
  2. OCREVUS [Suspect]
     Active Substance: OCRELIZUMAB
     Dosage: FIRST MAINTENANCE DOSE.
     Route: 042
     Dates: start: 20220307
  3. CORTISONE [Suspect]
     Active Substance: CORTISONE
     Indication: Premedication
     Dosage: FREQUENCY TEXT:3 TIMES OVER THE COURSE OF THE INFUSION
     Route: 042
     Dates: start: 20210804
  4. SERTRALINE HYDROCHLORIDE [Concomitant]
     Active Substance: SERTRALINE HYDROCHLORIDE
     Dosage: HALF TO ONE TABLET DAILY
  5. MIRABEGRON [Concomitant]
     Active Substance: MIRABEGRON
  6. DEMANNOSE [Concomitant]
     Active Substance: DEMANNOSE
  7. VITAMIN D3 [Concomitant]
     Active Substance: CHOLECALCIFEROL
  8. FERRUM [Concomitant]
  9. BIOTIN [Concomitant]
     Active Substance: BIOTIN
  10. ZINC [Concomitant]
     Active Substance: ZINC
  11. COMIRNATY [Concomitant]
     Indication: Immunisation
     Dosage: FIRST VACCINATION
     Dates: start: 20210523
  12. COMIRNATY [Concomitant]
     Dosage: SECOND VACCINATION
     Dates: start: 20210704
  13. CEFPODOXIME [Concomitant]
     Active Substance: CEFPODOXIME
  14. CIPROFLOXACIN [Concomitant]
     Active Substance: CIPROFLOXACIN
  15. PANTOPRAZOLE [Concomitant]
     Active Substance: PANTOPRAZOLE
  16. TRIMIPRAMINE [Concomitant]
     Active Substance: TRIMIPRAMINE

REACTIONS (14)
  - Infusion related reaction [Not Recovered/Not Resolved]
  - Depression [Recovered/Resolved]
  - Inappropriate schedule of product administration [Unknown]
  - Muscle spasticity [Recovered/Resolved]
  - Rash erythematous [Recovered/Resolved]
  - Diarrhoea [Recovered/Resolved]
  - Throat tightness [Recovered/Resolved]
  - Weight increased [Not Recovered/Not Resolved]
  - Throat irritation [Recovered/Resolved]
  - COVID-19 [Unknown]
  - Limb discomfort [Recovering/Resolving]
  - Muscular weakness [Recovering/Resolving]
  - Epilepsy [Recovered/Resolved]
  - Uterine malposition [Recovered/Resolved]

NARRATIVE: CASE EVENT DATE: 20210804
